FAERS Safety Report 11240580 (Version 1)
Quarter: 2015Q3

REPORT INFORMATION
  Report Type: Other
  Country: US (occurrence: US)
  Receive Date: 20150706
  Receipt Date: 20150706
  Transmission Date: 20151125
  Serious: Yes (Hospitalization, Other)
  Sender: FDA-Public Use
  Company Number: US-SHIRE-US201503674

PATIENT
  Age: 12 Year
  Sex: Male
  Weight: 35.3 kg

DRUGS (4)
  1. ELAPRASE [Suspect]
     Active Substance: IDURSULFASE
     Indication: MUCOPOLYSACCHARIDOSIS II
     Dosage: 18 MG (3 VIALS), 1X/WEEK (EVERY SATURDAY)
     Route: 041
     Dates: start: 2006
  2. LISINOPRIL. [Concomitant]
     Active Substance: LISINOPRIL
     Indication: CONGENITAL AORTIC VALVE INCOMPETENCE
     Dosage: 5 MG, 1X/DAY:QD
     Route: 048
  3. ALBUTEROL                          /00139501/ [Concomitant]
     Active Substance: ALBUTEROL
     Indication: PRODUCT USED FOR UNKNOWN INDICATION
     Dosage: 2 DF (2 PUFFS), AS REQ^D
     Route: 055
  4. FLOVENT [Concomitant]
     Active Substance: FLUTICASONE PROPIONATE
     Indication: PRODUCT USED FOR UNKNOWN INDICATION
     Dosage: 2 DF (2 PUFFS), AS REQ^D
     Route: 055

REACTIONS (3)
  - Pneumonia [Recovered/Resolved]
  - Rhinovirus infection [Unknown]
  - Agitation [Unknown]

NARRATIVE: CASE EVENT DATE: 201504
